FAERS Safety Report 9401600 (Version 1)
Quarter: 2013Q3

REPORT INFORMATION
  Report Type: Spontaneous
  Country: AU (occurrence: AU)
  Receive Date: 20130716
  Receipt Date: 20130716
  Transmission Date: 20140515
  Serious: Yes (Other)
  Sender: FDA-Public Use
  Company Number: AU-ROCHE-1247612

PATIENT
  Age: 52 Year
  Sex: Female

DRUGS (7)
  1. PEG-INTERFERON ALFA 2A [Suspect]
     Indication: LIVER DISORDER
     Route: 065
  2. RIBAVIRIN [Suspect]
     Indication: LIVER DISORDER
     Route: 065
  3. RIBAVIRIN [Suspect]
     Indication: HEPATITIS C
     Route: 065
     Dates: start: 2000
  4. INTERFERON ALFA-2A [Suspect]
     Indication: HEPATITIS C
     Dosage: 5 MILLION UNITS
     Route: 065
     Dates: start: 2000
  5. INCIVO [Suspect]
     Indication: LIVER DISORDER
     Route: 048
  6. INCIVO [Suspect]
     Indication: HEPATITIS C
     Route: 048
  7. LEVOTHYROXINE SODIUM [Concomitant]
     Route: 065

REACTIONS (15)
  - Pruritus [Unknown]
  - Alopecia [Unknown]
  - Skin disorder [Unknown]
  - Skin discolouration [Unknown]
  - Dyspnoea [Unknown]
  - Face oedema [Unknown]
  - Oral candidiasis [Unknown]
  - Thrombocytopenia [Unknown]
  - Depression [Unknown]
  - Mucosal inflammation [Unknown]
  - Oedema peripheral [Unknown]
  - Fatigue [Unknown]
  - Neutropenia [Unknown]
  - Rash [Unknown]
  - Anaemia [Unknown]
